FAERS Safety Report 24393488 (Version 2)
Quarter: 2024Q4

REPORT INFORMATION
  Report Type: Spontaneous
  Country: CA (occurrence: US)
  Receive Date: 20241003
  Receipt Date: 20241120
  Transmission Date: 20250115
  Serious: No
  Sender: SANDOZ
  Company Number: CA-SANDOZ-SDZ2024US082960

PATIENT
  Sex: Female

DRUGS (1)
  1. COMBIPATCH [Suspect]
     Active Substance: ESTRADIOL\NORETHINDRONE ACETATE
     Indication: Product used for unknown indication
     Dosage: 0.05/0.25 MG, UNKNOWN;
     Route: 062

REACTIONS (6)
  - Hormone level abnormal [Not Recovered/Not Resolved]
  - Hair growth abnormal [Not Recovered/Not Resolved]
  - Vaginal haemorrhage [Recovered/Resolved]
  - Migraine [Recovered/Resolved]
  - Product administration error [Not Recovered/Not Resolved]
  - Product quality issue [Not Recovered/Not Resolved]

NARRATIVE: CASE EVENT DATE: 20240101
